FAERS Safety Report 21411505 (Version 1)
Quarter: 2022Q4

REPORT INFORMATION
  Report Type: Spontaneous
  Country: US (occurrence: None)
  Receive Date: 20221005
  Receipt Date: 20221005
  Transmission Date: 20230113
  Serious: Yes (Life-Threatening)
  Sender: FDA-Public Use
  Company Number: None

PATIENT
  Age: 85 Year
  Sex: Female
  Weight: 60 kg

DRUGS (3)
  1. ZIRABEV [Suspect]
     Active Substance: BEVACIZUMAB-BVZR
     Indication: Colorectal cancer metastatic
     Dosage: FREQUENCY : EVERY OTHER WEEK;?
     Route: 042
     Dates: end: 20220927
  2. FLUOROURACIL [Concomitant]
     Active Substance: FLUOROURACIL
  3. Levcovirin [Concomitant]

REACTIONS (1)
  - Hypertensive emergency [None]

NARRATIVE: CASE EVENT DATE: 20220929
